FAERS Safety Report 13777033 (Version 1)
Quarter: 2017Q3

REPORT INFORMATION
  Report Type: Spontaneous
  Country: US (occurrence: US)
  Receive Date: 20170721
  Receipt Date: 20170721
  Transmission Date: 20171127
  Serious: Yes (Other)
  Sender: FDA-Public Use
  Company Number: None

PATIENT
  Age: 67 Year
  Sex: Female
  Weight: 86.85 kg

DRUGS (11)
  1. ASPIRIN. [Concomitant]
     Active Substance: ASPIRIN
  2. ZETIA [Concomitant]
     Active Substance: EZETIMIBE
  3. SUCRALFATE 1GM TABLET [Suspect]
     Active Substance: SUCRALFATE
     Indication: GASTRIC ULCER
     Dosage: ?          OTHER STRENGTH:GM;QUANTITY:120 TABLET(S);?
     Route: 048
     Dates: start: 20170701, end: 20170713
  4. OMEPRAZOLE. [Concomitant]
     Active Substance: OMEPRAZOLE
  5. ESCITALOPRAM [Concomitant]
     Active Substance: ESCITALOPRAM OXALATE
  6. FOLIC [Concomitant]
     Active Substance: FOLIC ACID
  7. NATURE-THROID [Concomitant]
     Active Substance: THYROID, PORCINE
  8. ROSUVASTATIN. [Concomitant]
     Active Substance: ROSUVASTATIN
  9. VITAMIN B12 [Concomitant]
     Active Substance: CYANOCOBALAMIN
  10. EFFIENT [Concomitant]
     Active Substance: PRASUGREL HYDROCHLORIDE
  11. VITAMIN D [Concomitant]
     Active Substance: CHOLECALCIFEROL

REACTIONS (3)
  - Back pain [None]
  - Gait disturbance [None]
  - Pain in extremity [None]

NARRATIVE: CASE EVENT DATE: 20170701
